FAERS Safety Report 8240480-7 (Version None)
Quarter: 2012Q1

REPORT INFORMATION
  Report Type: 
  Country: None (occurrence: None)
  Receive Date: 20120328
  Receipt Date: 20120322
  Transmission Date: 20120608
  Serious: Yes (Other)
  Sender: FDA-Public Use
  Company Number: GR-PFIZER INC-2012075536

PATIENT
  Sex: Female

DRUGS (5)
  1. CARVEDILOL [Suspect]
     Indication: HYPERTENSION
     Dosage: 0.5 DF, DAILY
     Route: 048
  2. NORVASC [Suspect]
     Dosage: 5 MG, 2X/DAY
     Route: 048
     Dates: start: 20120101
  3. NORVASC [Suspect]
     Indication: HYPERTENSION
     Dosage: 5 MG, 1X/DAY
     Route: 048
  4. IRBESARTAN + HYDROCHLOROTHIAZIDE [Suspect]
     Indication: HYPERTENSION
     Dosage: (300+25) MG, 1X/DAY
     Route: 048
  5. VASTAREL [Suspect]
     Indication: ANGIOPATHY
     Dosage: UNK
     Route: 048

REACTIONS (5)
  - BLOOD PRESSURE INADEQUATELY CONTROLLED [None]
  - ACCIDENT [None]
  - LOWER LIMB FRACTURE [None]
  - CHILLS [None]
  - HEADACHE [None]
